FAERS Safety Report 11094944 (Version 1)
Quarter: 2015Q2

REPORT INFORMATION
  Report Type: Spontaneous
  Country: US (occurrence: US)
  Receive Date: 20150506
  Receipt Date: 20150506
  Transmission Date: 20150821
  Serious: No
  Sender: FDA-Public Use
  Company Number: US-ELI_LILLY_AND_COMPANY-US201504003786

PATIENT
  Sex: Male

DRUGS (4)
  1. ALTACE [Concomitant]
     Active Substance: RAMIPRIL
  2. CIALIS [Suspect]
     Active Substance: TADALAFIL
     Indication: ERECTILE DYSFUNCTION
  3. PREVACID [Concomitant]
     Active Substance: LANSOPRAZOLE
     Dosage: 15 MG, UNKNOWN
  4. CIALIS [Suspect]
     Active Substance: TADALAFIL
     Indication: BENIGN PROSTATIC HYPERPLASIA
     Dosage: 5 MG, PRN
     Dates: start: 201405

REACTIONS (4)
  - Back pain [Recovered/Resolved]
  - Suspected counterfeit product [Recovered/Resolved]
  - Off label use [Recovered/Resolved]
  - Musculoskeletal discomfort [Recovered/Resolved]
